FAERS Safety Report 8176015-7 (Version None)
Quarter: 2012Q1

REPORT INFORMATION
  Report Type: 
  Country: None (occurrence: None)
  Receive Date: 20120228
  Receipt Date: 20120213
  Transmission Date: 20120608
  Serious: Yes (Hospitalization, Other)
  Sender: FDA-Public Use
  Company Number: FK201200387

PATIENT
  Age: 62 Year
  Sex: Female

DRUGS (1)
  1. DEXAMTHASONE INJECTION (MANUFACTURER UNKNOWN) (DEXAMETHASONE SODIUM SO [Suspect]
     Indication: PROPHYLAXIS
     Dosage: 10 MG, DAILY X 3 DAYS PRIOR TO PEG INSERTION, INTRAVENOUS (NOT OTHERWISE SPECIFIED)
     Route: 042

REACTIONS (4)
  - DEVICE LEAKAGE [None]
  - CATHETER SITE DISCHARGE [None]
  - INFECTIOUS PERITONITIS [None]
  - ABDOMINAL ABSCESS [None]
